FAERS Safety Report 24126095 (Version 1)
Quarter: 2024Q3

REPORT INFORMATION
  Report Type: Spontaneous
  Country: US (occurrence: None)
  Receive Date: 20240721
  Receipt Date: 20240721
  Transmission Date: 20241017
  Serious: Yes (Life-Threatening, Hospitalization, Disabling)
  Sender: Public
  Company Number: None

PATIENT
  Age: 29 Year
  Sex: Female
  Weight: 79.2 kg

DRUGS (1)
  1. EMGALITY [Suspect]
     Active Substance: GALCANEZUMAB-GNLM
     Indication: Migraine
     Dates: start: 20231201, end: 20240630

REACTIONS (6)
  - Panic attack [None]
  - Body temperature abnormal [None]
  - Heart rate increased [None]
  - Dizziness [None]
  - Loss of consciousness [None]
  - Alopecia [None]

NARRATIVE: CASE EVENT DATE: 20240702
